FAERS Safety Report 13883563 (Version 1)
Quarter: 2017Q3

REPORT INFORMATION
  Report Type: Spontaneous
  Country: US (occurrence: US)
  Receive Date: 20170819
  Receipt Date: 20170819
  Transmission Date: 20171127
  Serious: No
  Sender: FDA-Public Use
  Company Number: GXBR2017US001632

PATIENT
  Sex: Female
  Weight: 97.51 kg

DRUGS (4)
  1. ZOLOFT [Concomitant]
     Active Substance: SERTRALINE HYDROCHLORIDE
     Indication: DEPRESSION
     Dosage: 2 DF, QD (MORNING)
     Route: 048
  2. LORAZEPAM ACTAVIS 2MG [Suspect]
     Active Substance: LORAZEPAM
     Dosage: 1 MG, PRN
     Route: 048
  3. LORAZEPAM ACTAVIS 2MG [Suspect]
     Active Substance: LORAZEPAM
     Indication: ANXIETY
     Dosage: 0.5 MG, PRN
     Route: 048
  4. TOPAMAX [Concomitant]
     Active Substance: TOPIRAMATE
     Indication: SEIZURE
     Dosage: 2 DF, QD
     Route: 048

REACTIONS (2)
  - Drug ineffective [Not Recovered/Not Resolved]
  - Product physical issue [Not Recovered/Not Resolved]
